FAERS Safety Report 4740479-9 (Version None)
Quarter: 2005Q3

REPORT INFORMATION
  Report Type: 
  Country: None (occurrence: None)
  Receive Date: 20050810
  Receipt Date: 20050621
  Transmission Date: 20060218
  Serious: Yes (Hospitalization)
  Sender: FDA-Public Use
  Company Number: JP-BOEHRINGER INGELHEIM PHARMACEUTICALS, INC.-2005-BP-10547NB

PATIENT
  Sex: Male
  Weight: 55.7 kg

DRUGS (2)
  1. SPIRIVA [Suspect]
     Indication: EMPHYSEMA
     Route: 055
     Dates: start: 20041221
  2. MUCOSOLVAN [Concomitant]
     Indication: EMPHYSEMA
     Route: 048
     Dates: start: 20050412, end: 20050524

REACTIONS (3)
  - ABDOMINAL PAIN UPPER [None]
  - ILEUS PARALYTIC [None]
  - VOMITING [None]
